FAERS Safety Report 5215612-5 (Version None)
Quarter: 2007Q1

REPORT INFORMATION
  Report Type: 
  Country: None (occurrence: None)
  Receive Date: 20070123
  Receipt Date: 20070119
  Transmission Date: 20070707
  Serious: Yes (Death, Hospitalization)
  Sender: FDA-Public Use
  Company Number: PHRM2006FR03226

PATIENT
  Age: 81 Year
  Sex: Female
  Weight: 60 kg

DRUGS (10)
  1. MEMANTINE HCL [Suspect]
     Indication: DEMENTIA ALZHEIMER'S TYPE
     Dosage: UNK, UNK
     Route: 048
     Dates: start: 20031210
  2. INFLUENZA VACCINE [Suspect]
     Dosage: UNK, ONCE/SINGLE
     Route: 058
  3. EXELON [Suspect]
     Indication: DEMENTIA ALZHEIMER'S TYPE
     Dosage: 6 MG/DAY
     Route: 048
     Dates: start: 20020807
  4. CORVASAL [Concomitant]
     Indication: ARTERITIS CORONARY
     Route: 048
  5. ARESTAL [Concomitant]
     Indication: DIARRHOEA
     Route: 048
  6. DIFFU K [Concomitant]
     Indication: HYPOKALAEMIA
     Route: 048
  7. ALLOPURINOL SODIUM [Concomitant]
     Indication: GOUT
     Route: 048
  8. ASPIRIN [Concomitant]
     Route: 048
  9. EUPANTOL [Concomitant]
     Route: 048
  10. MOLSIDOMINE [Concomitant]
     Indication: CORONARY ARTERY INSUFFICIENCY
     Route: 048

REACTIONS (2)
  - PULSE ABSENT [None]
  - SYNCOPE [None]
